FAERS Safety Report 19784052 (Version 1)
Quarter: 2021Q3

REPORT INFORMATION
  Report Type: Spontaneous
  Country: US (occurrence: US)
  Receive Date: 20210903
  Receipt Date: 20210903
  Transmission Date: 20211014
  Serious: No
  Sender: FDA-Public Use
  Company Number: US-AUROBINDO-AUR-APL-2021-034964

PATIENT
  Sex: Male

DRUGS (1)
  1. ABACAVIR AND LAMIVUDINE 600MG+300MG TABLETS USP [Suspect]
     Active Substance: ABACAVIR\LAMIVUDINE
     Indication: HIV INFECTION
     Dosage: UNK
     Route: 065

REACTIONS (5)
  - Pruritus [Unknown]
  - Skin discolouration [Unknown]
  - Diarrhoea [Unknown]
  - Skin haemorrhage [Unknown]
  - Scratch [Unknown]
